FAERS Safety Report 4728964-7 (Version None)
Quarter: 2005Q3

REPORT INFORMATION
  Report Type: 
  Country: None (occurrence: None)
  Receive Date: 20050729
  Receipt Date: 20041130
  Transmission Date: 20060218
  Serious: No
  Sender: FDA-Public Use
  Company Number: US-GLAXOSMITHKLINE-A0535551A

PATIENT
  Age: 37 Year
  Sex: Female

DRUGS (10)
  1. IMITREX [Suspect]
     Indication: MIGRAINE
     Dosage: 100MG PER DAY
     Route: 048
     Dates: start: 20021101, end: 20021101
  2. AMERGE [Suspect]
     Indication: MIGRAINE
     Route: 065
     Dates: start: 20020101, end: 20020101
  3. ADVAIR DISKUS 100/50 [Concomitant]
  4. FLONASE [Concomitant]
  5. PREVACID [Concomitant]
  6. FLORID [Concomitant]
  7. ZYRTEC-D 12 HOUR [Concomitant]
  8. ALLEGRA D [Concomitant]
  9. ALBUTEROL [Concomitant]
  10. UNKNOWN MEDICATION [Concomitant]

REACTIONS (1)
  - DRUG INEFFECTIVE [None]
